FAERS Safety Report 15202786 (Version 1)
Quarter: 2018Q3

REPORT INFORMATION
  Report Type: Spontaneous
  Country: US (occurrence: US)
  Receive Date: 20180726
  Receipt Date: 20180726
  Transmission Date: 20181010
  Serious: No
  Sender: FDA-Public Use
  Company Number: US-ENDO PHARMACEUTICALS INC-2018-016410

PATIENT
  Sex: Female

DRUGS (2)
  1. METHYLPREDNISOLONE TABLETS [Suspect]
     Active Substance: METHYLPREDNISOLONE
     Indication: PRODUCT USED FOR UNKNOWN INDICATION
     Dosage: UNK UNK, UNKNOWN
     Route: 065
  2. HYDROCORTISONE TABLETS [Suspect]
     Active Substance: HYDROCORTISONE
     Indication: EPINEPHRINE DECREASED
     Dosage: UNK UNK, UNKNOWN
     Route: 065
     Dates: start: 20170326

REACTIONS (5)
  - Nausea [Unknown]
  - Feeding disorder [Unknown]
  - Impaired work ability [Unknown]
  - Hepatic steatosis [Unknown]
  - Gastric disorder [Unknown]
